FAERS Safety Report 17494268 (Version 1)
Quarter: 2020Q1

REPORT INFORMATION
  Report Type: Spontaneous
  Country: US (occurrence: US)
  Receive Date: 20200303
  Receipt Date: 20200303
  Transmission Date: 20200409
  Serious: No
  Sender: FDA-Public Use
  Company Number: US-AMNEAL PHARMACEUTICALS-2019-AMRX-01816

PATIENT
  Age: 80 Year
  Sex: Female
  Weight: 67 kg

DRUGS (2)
  1. CARBIDOPA LEVODOPA [Suspect]
     Active Substance: CARBIDOPA\LEVODOPA
     Indication: PRODUCT USED FOR UNKNOWN INDICATION
     Dosage: 1 TABLET OR HALF A TABLET, 4 /DAY
     Route: 065
  2. RYTARY [Suspect]
     Active Substance: CARBIDOPA\LEVODOPA
     Indication: PARKINSON^S DISEASE
     Dosage: 3 DOSAGE FORM, 3 /DAY
     Route: 048
     Dates: start: 201908, end: 201908

REACTIONS (5)
  - Limb discomfort [Not Recovered/Not Resolved]
  - Tremor [Recovering/Resolving]
  - Hallucination [Recovering/Resolving]
  - Somnolence [Not Recovered/Not Resolved]
  - Balance disorder [Not Recovered/Not Resolved]

NARRATIVE: CASE EVENT DATE: 201908
